FAERS Safety Report 6002483-2 (Version None)
Quarter: 2008Q4

REPORT INFORMATION
  Report Type: 
  Country: None (occurrence: None)
  Receive Date: 20081215
  Receipt Date: 20071126
  Transmission Date: 20090506
  Serious: No
  Sender: FDA-Public Use
  Company Number: US-AMGEN-KDL254144

PATIENT
  Sex: Female

DRUGS (2)
  1. ENBREL [Suspect]
     Indication: RHEUMATOID ARTHRITIS
     Route: 058
     Dates: start: 20060911
  2. SULFASALAZINE [Concomitant]
     Route: 048
     Dates: start: 20071112

REACTIONS (3)
  - JOINT RANGE OF MOTION DECREASED [None]
  - PAIN [None]
  - TENDON DISORDER [None]
